FAERS Safety Report 17724748 (Version 1)
Quarter: 2020Q2

REPORT INFORMATION
  Report Type: Spontaneous
  Country: US (occurrence: US)
  Receive Date: 20200429
  Receipt Date: 20200429
  Transmission Date: 20200714
  Serious: Yes (Disabling, Other)
  Sender: FDA-Public Use
  Company Number: None

PATIENT
  Age: 47 Year
  Sex: Female
  Weight: 56.7 kg

DRUGS (5)
  1. METAGENICS HEMAGENICS(IRON TABLET) [Concomitant]
  2. METAGENICS PHYTOMULTI [Concomitant]
  3. VIVISCAL PROFESSIONAL [Concomitant]
  4. TRIAMCINOLONE ACETONIDE CREAM USP [Suspect]
     Active Substance: TRIAMCINOLONE ACETONIDE
     Indication: DERMATITIS
     Dosage: ?          QUANTITY:1 PATCH(ES);?
     Route: 061
     Dates: start: 20200404, end: 20200409
  5. BUPROPION XL 150 MG [Concomitant]
     Active Substance: BUPROPION

REACTIONS (10)
  - Dry skin [None]
  - Rash [None]
  - Pain [None]
  - Erythema [None]
  - Blister [None]
  - Skin exfoliation [None]
  - Scar [None]
  - Skin burning sensation [None]
  - Acne [None]
  - Skin hypertrophy [None]

NARRATIVE: CASE EVENT DATE: 20200417
